FAERS Safety Report 8313480 (Version 2)
Quarter: 2012Q4

REPORT INFORMATION
  Report Type: 
  Country: US (occurrence: US)
  Receive Date: 20111228
  Receipt Date: 20120921
  Transmission Date: 20130627
  Serious: Yes (Hospitalization)
  Sender: FDA-Public Use
  Company Number: US-US-EMD SERONO, INC.-7103015

PATIENT
  Age: 56 Year
  Sex: Female

DRUGS (7)
  1. REBIF [Suspect]
     Indication: MULTIPLE SCLEROSIS
     Route: 058
     Dates: start: 20110930, end: 201204
  2. LYRICA [Concomitant]
     Indication: PRODUCT USED FOR UNKNOWN INDICATION
  3. CYMBALTA [Concomitant]
     Indication: PRODUCT USED FOR UNKNOWN INDICATION
  4. EXALGO [Concomitant]
     Indication: PRODUCT USED FOR UNKNOWN INDICATION
  5. AMPYRA [Concomitant]
     Indication: PRODUCT USED FOR UNKNOWN INDICATION
  6. PERCOCET [Concomitant]
     Indication: PRODUCT USED FOR UNKNOWN INDICATION
  7. DETROL [Concomitant]
     Indication: PRODUCT USED FOR UNKNOWN INDICATION

REACTIONS (1)
  - Pain in extremity [Recovered/Resolved]
